FAERS Safety Report 4737447-X (Version None)
Quarter: 2005Q3

REPORT INFORMATION
  Report Type: 
  Country: None (occurrence: None)
  Receive Date: 20050805
  Receipt Date: 20050722
  Transmission Date: 20060218
  Serious: Yes (Life-Threatening)
  Sender: FDA-Public Use
  Company Number: 216349

PATIENT
  Age: 44 Year
  Sex: Female

DRUGS (4)
  1. AVASTIN [Suspect]
     Indication: COLORECTAL CANCER METASTATIC
     Dates: start: 20050201, end: 20050523
  2. IRINOTECAN HCL [Concomitant]
  3. 5-FU (FLUOROURACIL) [Concomitant]
  4. LEUCOVORIN (LEUCOVORI CALCIUM) [Concomitant]

REACTIONS (2)
  - HAEMORRHAGE [None]
  - PROCEDURAL SITE REACTION [None]
